FAERS Safety Report 24192312 (Version 2)
Quarter: 2025Q1

REPORT INFORMATION
  Report Type: Spontaneous
  Country: PT (occurrence: PT)
  Receive Date: 20240809
  Receipt Date: 20250116
  Transmission Date: 20250408
  Serious: Yes (Life-Threatening, Hospitalization, Other)
  Sender: IPCA
  Company Number: None

PATIENT

DRUGS (3)
  1. ACETAMINOPHEN [Interacting]
     Active Substance: ACETAMINOPHEN
     Indication: Osteitis deformans
     Route: 065
  2. TRAMADOL [Interacting]
     Active Substance: TRAMADOL
     Indication: Osteitis deformans
     Route: 065
  3. TAPENTADOL [Interacting]
     Active Substance: TAPENTADOL
     Indication: Osteitis deformans
     Route: 065

REACTIONS (4)
  - Serotonin syndrome [Recovered/Resolved]
  - Hyperthermia malignant [Recovered/Resolved]
  - Hyperthermia [Recovered/Resolved]
  - Drug interaction [Unknown]
